FAERS Safety Report 22149876 (Version 2)
Quarter: 2023Q2

REPORT INFORMATION
  Report Type: Spontaneous
  Country: NL (occurrence: NL)
  Receive Date: 20230329
  Receipt Date: 20230629
  Transmission Date: 20230721
  Serious: Yes (Other)
  Sender: FDA-Public Use
  Company Number: NL-SA-SAC20230327000291

PATIENT
  Sex: Female

DRUGS (1)
  1. DUPILUMAB [Suspect]
     Active Substance: DUPILUMAB
     Indication: Asthma
     Dosage: 300 MG, QOW
     Route: 065
     Dates: start: 20220520

REACTIONS (1)
  - Neoplasm malignant [Unknown]

NARRATIVE: CASE EVENT DATE: 20230414
